FAERS Safety Report 10730621 (Version 1)
Quarter: 2015Q1

REPORT INFORMATION
  Report Type: Report from Study
  Country: US (occurrence: US)
  Receive Date: 20150122
  Receipt Date: 20150122
  Transmission Date: 20150721
  Serious: Yes (Hospitalization, Other)
  Sender: FDA-Public Use
  Company Number: US-ABBVIE-15K-163-1334758-00

PATIENT
  Age: 22 Year
  Sex: Female
  Weight: 63.56 kg

DRUGS (5)
  1. RANITIDINE [Concomitant]
     Active Substance: RANITIDINE\RANITIDINE HYDROCHLORIDE
     Indication: GASTROOESOPHAGEAL REFLUX DISEASE
  2. IBUPROFEN. [Concomitant]
     Active Substance: IBUPROFEN
     Indication: PELVIC PAIN
  3. LUPRON DEPOT [Suspect]
     Active Substance: LEUPROLIDE ACETATE
     Indication: ENDOMETRIOSIS
     Route: 030
     Dates: start: 201008, end: 201009
  4. TRAMADOL [Concomitant]
     Active Substance: TRAMADOL
     Indication: PELVIC PAIN
  5. MIRALAX [Concomitant]
     Active Substance: POLYETHYLENE GLYCOL 3350
     Indication: CONSTIPATION

REACTIONS (9)
  - Cephalo-pelvic disproportion [Recovered/Resolved]
  - Arrested labour [Recovered/Resolved]
  - Pre-eclampsia [Recovered/Resolved]
  - Night sweats [Recovered/Resolved]
  - Mood swings [Recovered/Resolved]
  - Premature rupture of membranes [Recovered/Resolved]
  - Weight increased [Recovered/Resolved]
  - Weight increased [Recovered/Resolved]
  - Hot flush [Recovered/Resolved]

NARRATIVE: CASE EVENT DATE: 201008
